FAERS Safety Report 11214802 (Version 2)
Quarter: 2015Q3

REPORT INFORMATION
  Report Type: Report from Study
  Country: US (occurrence: US)
  Receive Date: 20150624
  Receipt Date: 20150707
  Transmission Date: 20151125
  Serious: Yes (Hospitalization)
  Sender: FDA-Public Use
  Company Number: US-BIOGENIDEC-2015BI083241

PATIENT
  Age: 53 Year
  Sex: Female

DRUGS (7)
  1. DULOXETINE. [Concomitant]
     Active Substance: DULOXETINE
  2. MIRTAZAPINE. [Concomitant]
     Active Substance: MIRTAZAPINE
  3. TOVIAZ [Concomitant]
     Active Substance: FESOTERODINE FUMARATE
  4. BACLOFEN. [Concomitant]
     Active Substance: BACLOFEN
  5. POTASSIUM [Concomitant]
     Active Substance: POTASSIUM
  6. SYNTHROID [Concomitant]
     Active Substance: LEVOTHYROXINE SODIUM
  7. TECFIDERA [Suspect]
     Active Substance: DIMETHYL FUMARATE
     Indication: MULTIPLE SCLEROSIS
     Route: 048
     Dates: start: 201404

REACTIONS (2)
  - Foreign body aspiration [Unknown]
  - White blood cell disorder [Unknown]

NARRATIVE: CASE EVENT DATE: 201506
